FAERS Safety Report 5869910-2 (Version None)
Quarter: 2008Q3

REPORT INFORMATION
  Report Type: 
  Country: None (occurrence: None)
  Receive Date: 20080904
  Receipt Date: 20080826
  Transmission Date: 20090109
  Serious: Yes (Other)
  Sender: FDA-Public Use
  Company Number: PHEH2008US07607

PATIENT
  Sex: Female

DRUGS (4)
  1. ZOMETA [Suspect]
     Dosage: UNK
     Dates: end: 20060101
  2. LORTAB [Concomitant]
     Dosage: 7.5 MG, UNK
  3. TAMOXIFEN CITRATE [Concomitant]
  4. ADVIL LIQUI-GELS [Concomitant]

REACTIONS (15)
  - BONE DISORDER [None]
  - COMPUTERISED TOMOGRAM ABNORMAL [None]
  - CONCOMITANT DISEASE PROGRESSION [None]
  - DENTAL FISTULA [None]
  - INFECTION [None]
  - INTERVERTEBRAL DISC DEGENERATION [None]
  - METASTASES TO BONE [None]
  - NERVE INJURY [None]
  - ORAL SURGERY [None]
  - OSTEONECROSIS [None]
  - PAIN [None]
  - PARAESTHESIA [None]
  - T-LYMPHOCYTE COUNT INCREASED [None]
  - TOOTH EXTRACTION [None]
  - WOUND DRAINAGE [None]
